FAERS Safety Report 4656718-9 (Version None)
Quarter: 2005Q2

REPORT INFORMATION
  Report Type: 
  Country: None (occurrence: None)
  Receive Date: 20050506
  Receipt Date: 20050429
  Transmission Date: 20051028
  Serious: Yes (Other)
  Sender: FDA-Public Use
  Company Number: MED000142

PATIENT
  Age: 14 Year
  Sex: Male

DRUGS (1)
  1. LACTATED RINGERS INJECTION (LACTATED RINGERS INJECTION) [Suspect]
     Indication: APPENDICECTOMY
     Dosage: 500 ML; UNK; UNKNOWN
     Route: 065
     Dates: start: 20050420

REACTIONS (1)
  - ANAPHYLACTIC REACTION [None]
